FAERS Safety Report 16992413 (Version 1)
Quarter: 2019Q4

REPORT INFORMATION
  Report Type: Spontaneous
  Country: US (occurrence: US)
  Receive Date: 20191105
  Receipt Date: 20191105
  Transmission Date: 20200122
  Serious: No
  Sender: FDA-Public Use
  Company Number: US-ELI_LILLY_AND_COMPANY-US201910014841

PATIENT
  Sex: Female

DRUGS (2)
  1. TRULICITY [Suspect]
     Active Substance: DULAGLUTIDE
     Indication: CARDIOMETABOLIC SYNDROME
     Dosage: 0.75 MG, UNKNOWN
     Route: 058
     Dates: start: 201910
  2. TRULICITY [Suspect]
     Active Substance: DULAGLUTIDE
     Indication: BLOOD GLUCOSE ABNORMAL
     Dosage: 0.75 MG, UNKNOWN
     Route: 058

REACTIONS (1)
  - Extra dose administered [Unknown]
